FAERS Safety Report 9631944 (Version 1)
Quarter: 2013Q4

REPORT INFORMATION
  Report Type: Spontaneous
  Country: IN (occurrence: None)
  Receive Date: 20131016
  Receipt Date: 20131016
  Transmission Date: 20140711
  Serious: Yes (Hospitalization)
  Sender: FDA-Public Use
  Company Number: AUR-APL-2013-08521

PATIENT
  Age: 60 Year
  Sex: Female

DRUGS (1)
  1. CEFTRIAXONE (CEFTRIAXONE) [Suspect]
     Indication: PNEUMONIA
     Dosage: (1 GM, 2 IN 1 D)
     Route: 042

REACTIONS (1)
  - Haemolytic anaemia [None]
